FAERS Safety Report 6306886-8 (Version None)
Quarter: 2009Q3

REPORT INFORMATION
  Report Type: 
  Country: None (occurrence: None)
  Receive Date: 20090810
  Receipt Date: 20090803
  Transmission Date: 20100115
  Serious: Yes (Other)
  Sender: FDA-Public Use
  Company Number: RENA-1000419

PATIENT
  Sex: 0

DRUGS (1)
  1. RENAGEL [Suspect]
     Indication: HYPERPHOSPHATAEMIA
     Dosage: 3.0 G, QD, ORAL
     Route: 048
     Dates: end: 20090201

REACTIONS (1)
  - GASTROINTESTINAL HAEMORRHAGE [None]
